FAERS Safety Report 25055920 (Version 2)
Quarter: 2025Q1

REPORT INFORMATION
  Report Type: Report from Study
  Country: US (occurrence: US)
  Receive Date: 20250309
  Receipt Date: 20250320
  Transmission Date: 20250409
  Serious: Yes (Life-Threatening, Hospitalization, Other)
  Sender: SANOFI AVENTIS
  Company Number: US-SA-2025SA068809

PATIENT
  Age: 90 Year
  Sex: Male

DRUGS (1)
  1. DUPILUMAB [Suspect]
     Active Substance: DUPILUMAB
     Indication: Dermatitis atopic
     Dosage: 300 MG, QOW
     Route: 058
     Dates: end: 2024

REACTIONS (2)
  - Spinal cord infection [Recovered/Resolved]
  - Hypoacusis [Unknown]

NARRATIVE: CASE EVENT DATE: 20240901
